FAERS Safety Report 8068391-0 (Version None)
Quarter: 2012Q1

REPORT INFORMATION
  Report Type: 
  Country: None (occurrence: None)
  Receive Date: 20120124
  Receipt Date: 20111025
  Transmission Date: 20120608
  Serious: No
  Sender: FDA-Public Use
  Company Number: US-AMGEN-USASP2011055155

PATIENT
  Age: 57 Year
  Sex: Female

DRUGS (10)
  1. VITAMIN D [Concomitant]
     Dosage: 1 IU, UNK
  2. CHOLESTEROL [Concomitant]
  3. PROLIA [Suspect]
     Indication: OSTEOPOROSIS POSTMENOPAUSAL
     Dosage: 60 MG, Q6MO
     Dates: start: 20111001
  4. CALCIUM [Concomitant]
  5. THYROID [Concomitant]
  6. VITAMIN D [Concomitant]
     Dosage: 1 IU, QD
  7. CARISOPRODOL [Concomitant]
     Indication: FEELING OF RELAXATION
     Dosage: UNK, QD
  8. BONIVA [Concomitant]
  9. TEMAZEPAM [Concomitant]
     Indication: INSOMNIA
  10. INDOMETHACIN [Concomitant]
     Indication: INFLAMMATION

REACTIONS (6)
  - TREMOR [None]
  - HYPERSOMNIA [None]
  - MUSCULOSKELETAL STIFFNESS [None]
  - STRESS [None]
  - FEELING ABNORMAL [None]
  - MUSCLE SPASMS [None]
